FAERS Safety Report 21592304 (Version 1)
Quarter: 2022Q4

REPORT INFORMATION
  Report Type: Spontaneous
  Country: US (occurrence: None)
  Receive Date: 20221113
  Receipt Date: 20221113
  Transmission Date: 20230113
  Serious: Yes (Hospitalization, Other)
  Sender: FDA-Public Use
  Company Number: None

PATIENT
  Age: 61 Year
  Sex: Male
  Weight: 87.75 kg

DRUGS (12)
  1. TRULICITY [Suspect]
     Active Substance: DULAGLUTIDE
     Indication: Diabetes mellitus
     Dosage: OTHER QUANTITY : 1 INJECTION(S);?OTHER FREQUENCY : WEEKLY;?
     Route: 058
     Dates: start: 20220813, end: 20220903
  2. GLIPIZIDE [Concomitant]
     Active Substance: GLIPIZIDE
  3. METFORMIN [Concomitant]
     Active Substance: METFORMIN HYDROCHLORIDE
  4. ROSUVASTATIN [Concomitant]
     Active Substance: ROSUVASTATIN
  5. FENOFIBRATE [Concomitant]
     Active Substance: FENOFIBRATE
  6. AMLODIPINE BESYLATE [Concomitant]
     Active Substance: AMLODIPINE BESYLATE
  7. LISINOPRIL [Concomitant]
     Active Substance: LISINOPRIL
  8. ONGLYZA [Concomitant]
     Active Substance: SAXAGLIPTIN HYDROCHLORIDE
  9. pantropozol [Concomitant]
  10. esacatalopram [Concomitant]
  11. MAGNESIUM [Concomitant]
     Active Substance: MAGNESIUM
  12. folate b1 [Concomitant]

REACTIONS (1)
  - Cholecystitis infective [None]

NARRATIVE: CASE EVENT DATE: 20220901
